FAERS Safety Report 6940378-8 (Version None)
Quarter: 2010Q3

REPORT INFORMATION
  Report Type: 
  Country: None (occurrence: None)
  Receive Date: 20100825
  Receipt Date: 20100618
  Transmission Date: 20110219
  Serious: Yes (Other)
  Sender: FDA-Public Use
  Company Number: US-WYE-H16931910

PATIENT
  Sex: Female
  Weight: 77.18 kg

DRUGS (12)
  1. PANTOPRAZOLE [Suspect]
     Indication: GASTROOESOPHAGEAL REFLUX DISEASE
     Route: 048
  2. PRAVASTATIN [Concomitant]
     Route: 048
  3. KLOR-CON [Concomitant]
     Route: 048
  4. METOPROLOL [Concomitant]
     Route: 048
  5. PREDNISOLONE [Concomitant]
     Route: 047
  6. PLAVIX [Concomitant]
     Indication: POOR PERIPHERAL CIRCULATION
     Route: 048
  7. BENICAR [Concomitant]
     Indication: CARDIAC DISORDER
     Route: 048
  8. SINGULAIR [Concomitant]
     Indication: HYPERSENSITIVITY
  9. COMBIVENT [Concomitant]
     Indication: CHRONIC OBSTRUCTIVE PULMONARY DISEASE
     Dosage: 4 X'S DAY
     Route: 055
  10. BETIMOL [Concomitant]
     Route: 047
  11. XALATAN [Suspect]
     Indication: CORNEAL TRANSPLANT
     Route: 047
     Dates: start: 20090101
  12. FUROSEMIDE [Concomitant]
     Indication: SWELLING
     Route: 048

REACTIONS (1)
  - DEHYDRATION [None]
